FAERS Safety Report 9007911 (Version 1)
Quarter: 2013Q1

REPORT INFORMATION
  Report Type: Spontaneous
  Country: US (occurrence: US)
  Receive Date: 20130111
  Receipt Date: 20130111
  Transmission Date: 20140127
  Serious: Yes (Other)
  Sender: FDA-Public Use
  Company Number: US-009507513-1012USA00689

PATIENT
  Age: 39 Month
  Sex: Male
  Weight: 13.61 kg

DRUGS (1)
  1. SINGULAIR [Suspect]
     Indication: ASTHMA PROPHYLAXIS
     Dosage: 4 MG, QD
     Route: 048
     Dates: start: 20091223, end: 20100220

REACTIONS (1)
  - Amnesia [Recovering/Resolving]
